FAERS Safety Report 21437120 (Version 5)
Quarter: 2023Q1

REPORT INFORMATION
  Report Type: Spontaneous
  Country: JP (occurrence: JP)
  Receive Date: 20221010
  Receipt Date: 20230228
  Transmission Date: 20230418
  Serious: Yes (Other)
  Sender: FDA-Public Use
  Company Number: JP-SA-2022SA267785

PATIENT
  Age: 16 Month
  Sex: Female
  Weight: 8 kg

DRUGS (5)
  1. SABRIL [Suspect]
     Active Substance: VIGABATRIN
     Indication: Infantile spasms
     Dosage: DAILY DOSE 1200 MG, BID
     Route: 048
     Dates: start: 20220106, end: 20220510
  2. RIVOTRIL [Concomitant]
     Active Substance: CLONAZEPAM
     Indication: Infantile spasms
     Dosage: DAILY DOSE 0.8 MG
     Route: 048
     Dates: end: 20220330
  3. VALPROATE SODIUM [Concomitant]
     Active Substance: VALPROATE SODIUM
     Indication: Infantile spasms
     Dosage: DAILY DOSE 250 MG
     Route: 048
     Dates: end: 20220627
  4. ZONISAMIDE [Concomitant]
     Active Substance: ZONISAMIDE
     Indication: Infantile spasms
     Dosage: DAILY DOSE 80 MG
     Route: 048
     Dates: end: 20220501
  5. CLONAZEPAM [Concomitant]
     Active Substance: CLONAZEPAM
     Indication: Product used for unknown indication
     Route: 065

REACTIONS (2)
  - Retinogram abnormal [Unknown]
  - Drug ineffective [Unknown]

NARRATIVE: CASE EVENT DATE: 20220411
